FAERS Safety Report 16397895 (Version 1)
Quarter: 2019Q2

REPORT INFORMATION
  Report Type: Spontaneous
  Country: US (occurrence: US)
  Receive Date: 20190606
  Receipt Date: 20190606
  Transmission Date: 20190711
  Serious: Yes (Life-Threatening, Hospitalization, Other)
  Sender: FDA-Public Use
  Company Number: US-AUROBINDO-AUR-APL-2019-031532

PATIENT

DRUGS (3)
  1. LIDOCAINE INJECTION [Suspect]
     Active Substance: LIDOCAINE
     Indication: LOCAL ANAESTHESIA
     Dosage: 29 MG/KG IN A TOTAL
     Route: 058
  2. EPINEPHRINE. [Concomitant]
     Active Substance: EPINEPHRINE
     Indication: LOCAL ANAESTHESIA
     Dosage: TOTAL OF 1400 ML
     Route: 058
  3. SODIUM BICARBONATE. [Concomitant]
     Active Substance: SODIUM BICARBONATE
     Indication: LOCAL ANAESTHESIA
     Dosage: TOTAL OF 1400 ML
     Route: 058

REACTIONS (2)
  - Local anaesthetic systemic toxicity [Recovered/Resolved]
  - Status epilepticus [Recovered/Resolved]
